FAERS Safety Report 20919450 (Version 1)
Quarter: 2022Q2

REPORT INFORMATION
  Report Type: Spontaneous
  Country: US (occurrence: US)
  Receive Date: 20220606
  Receipt Date: 20220606
  Transmission Date: 20220721
  Serious: No
  Sender: FDA-Public Use
  Company Number: US-PFIZER INC-202200788184

PATIENT
  Age: 77 Year
  Sex: Female
  Weight: 61.23 kg

DRUGS (2)
  1. PAXLOVID [Suspect]
     Active Substance: NIRMATRELVIR\RITONAVIR
     Indication: Cardiac disorder
     Dosage: 4 DF, 2X/DAY (IN THE MORNING TOOK TWO TABLETS IN THE EVENING TOOK TWO TABLETS)
     Dates: start: 20220524, end: 20220529
  2. PAXLOVID [Suspect]
     Active Substance: NIRMATRELVIR\RITONAVIR
     Indication: COVID-19 treatment

REACTIONS (4)
  - Off label use [Unknown]
  - Weight decreased [Unknown]
  - COVID-19 [Unknown]
  - Disease recurrence [Unknown]

NARRATIVE: CASE EVENT DATE: 20220524
